FAERS Safety Report 9898029 (Version 3)
Quarter: 2014Q2

REPORT INFORMATION
  Report Type: Spontaneous
  Country: IT (occurrence: IT)
  Receive Date: 20140214
  Receipt Date: 20140617
  Transmission Date: 20141212
  Serious: Yes (Hospitalization)
  Sender: FDA-Public Use
  Company Number: IT-PFIZER INC-2014040425

PATIENT
  Age: 75 Year
  Sex: Male

DRUGS (15)
  1. RAMIPRIL [Suspect]
     Indication: CARDIAC FAILURE
     Dosage: 5 MG, DAILY
     Route: 048
  2. CARVEDILOL [Suspect]
     Indication: CARDIAC FAILURE
     Dosage: 50 MG, DAILY
     Route: 048
  3. LOSARTAN POTASSIUM [Suspect]
     Dosage: 50 MG, DAILY
     Route: 048
  4. AMLODIPINE BESILATE [Suspect]
     Dosage: 10 MG, DAILY
     Route: 048
  5. CLOPIDOGREL [Suspect]
     Dosage: 75 MG, DAILY
     Route: 048
  6. FUROSEMIDE [Suspect]
     Indication: CARDIAC FAILURE
     Dosage: 50 MG, DAILY
     Route: 048
  7. DOXAZOSIN MESILATE [Suspect]
     Dosage: 4 MG, DAILY
     Route: 048
  8. GLIBENCLAMIDE/METFORMIN [Suspect]
     Dosage: [METFORMIN 450 MG]/[GILBENCLAMIDE 2.5 MG], UNK
     Route: 048
  9. ASPIRIN [Suspect]
     Dosage: 100 MG, DAILY
     Route: 048
  10. ISOSORBIDE MONONITRATE [Suspect]
     Indication: CARDIAC FAILURE
     Dosage: 40 MG, 3X/DAY
     Route: 048
  11. URSODEOXYCHOLIC ACID [Suspect]
     Dosage: 450 MG, DAILY
     Route: 048
  12. NITROGLYCERIN [Suspect]
     Indication: CARDIAC FAILURE
     Dosage: 15 MG, DAILY
     Route: 062
  13. IVABRADINE HYDROCHLORIDE [Suspect]
     Dosage: 5 MG, 2X/DAY
     Route: 048
  14. RANOLAZINE [Suspect]
     Dosage: 375 MG, 2X/DAY
     Route: 048
  15. NAPHAZOLINE [Concomitant]
     Dosage: UNK

REACTIONS (2)
  - Photopsia [Recovered/Resolved]
  - Hallucination, visual [Recovered/Resolved]
